FAERS Safety Report 4650746-5 (Version None)
Quarter: 2005Q2

REPORT INFORMATION
  Report Type: 
  Country: None (occurrence: None)
  Receive Date: 20050429
  Receipt Date: 20050222
  Transmission Date: 20051028
  Serious: Yes (Other)
  Sender: FDA-Public Use
  Company Number: 2005BL001127

PATIENT
  Age: 50 Year
  Sex: Male

DRUGS (1)
  1. RETISERT (FLUOCINOLONE ACETONIDE INTRAVITREAL IMPLANT 0.59 MG) [Suspect]
     Indication: DIABETIC RETINAL OEDEMA
     Dosage: RIGHT EYE
     Dates: start: 20020117

REACTIONS (4)
  - CORNEAL DEGENERATION [None]
  - CORNEAL GRAFT REJECTION [None]
  - CORNEAL OEDEMA [None]
  - CORNEAL OPACITY [None]
